FAERS Safety Report 6631194-5 (Version None)
Quarter: 2010Q1

REPORT INFORMATION
  Report Type: 
  Country: None (occurrence: None)
  Receive Date: 20100309
  Receipt Date: 20100226
  Transmission Date: 20100710
  Serious: Yes (Death, Hospitalization, Other)
  Sender: FDA-Public Use
  Company Number: 230355J10BRA

PATIENT
  Age: 33 Year
  Sex: Male

DRUGS (2)
  1. REBIF [Suspect]
     Indication: OFF LABEL USE
     Dosage: 22 MCG, 3 IN 1 WEEKS
     Dates: start: 20090525, end: 20091201
  2. REBIF [Suspect]
     Indication: PRIMARY PROGRESSIVE MULTIPLE SCLEROSIS
     Dosage: 22 MCG, 3 IN 1 WEEKS
     Dates: start: 20090525, end: 20091201

REACTIONS (6)
  - ABDOMINAL PAIN UPPER [None]
  - GASTRITIS [None]
  - OFF LABEL USE [None]
  - POST PROCEDURAL INFECTION [None]
  - SURGICAL FAILURE [None]
  - ULCER HAEMORRHAGE [None]
